FAERS Safety Report 10901040 (Version 1)
Quarter: 2015Q1

REPORT INFORMATION
  Report Type: Spontaneous
  Country: ES (occurrence: ES)
  Receive Date: 20150310
  Receipt Date: 20150310
  Transmission Date: 20150721
  Serious: Yes (Life-Threatening, Hospitalization, Other)
  Sender: FDA-Public Use
  Company Number: ES-SHIRE-ES201501725

PATIENT
  Age: 58 Year
  Sex: Male

DRUGS (4)
  1. MEZAVANT [Suspect]
     Active Substance: MESALAMINE
     Indication: COLITIS ULCERATIVE
     Dosage: 2400 MG, 1X/DAY:QD
     Route: 048
     Dates: start: 20140708, end: 20150205
  2. DACORTIN H [Concomitant]
     Indication: COLITIS ULCERATIVE
     Dosage: 30 MG, 1X/DAY:QD
     Route: 048
     Dates: start: 20140930
  3. MEZAVANT [Suspect]
     Active Substance: MESALAMINE
     Dosage: 3600 MG, 1X/DAY:QD (IN THE MORNING)
     Route: 048
     Dates: start: 20150206
  4. OMEPRAZOL [Concomitant]
     Active Substance: OMEPRAZOLE
     Indication: PRODUCT USED FOR UNKNOWN INDICATION
     Dosage: 20 MG, 1X/DAY:QD
     Route: 048
     Dates: start: 20120504

REACTIONS (2)
  - Colitis ulcerative [Unknown]
  - Ventricular tachycardia [Recovered/Resolved]

NARRATIVE: CASE EVENT DATE: 20150215
